FAERS Safety Report 10287395 (Version 1)
Quarter: 2014Q3

REPORT INFORMATION
  Report Type: Spontaneous
  Country: US (occurrence: None)
  Receive Date: 20140707
  Receipt Date: 20140707
  Transmission Date: 20150326
  Serious: Yes (Hospitalization)
  Sender: FDA-Public Use
  Company Number: None

PATIENT
  Age: 75 Year
  Sex: Male
  Weight: 81.4 kg

DRUGS (2)
  1. WARFARIN [Suspect]
     Active Substance: WARFARIN
     Indication: ATRIAL FIBRILLATION
     Route: 048
     Dates: start: 20140419, end: 20140501
  2. ASPIRIN. [Suspect]
     Active Substance: ASPIRIN
     Indication: CARDIAC OPERATION
     Route: 048
     Dates: start: 20140419, end: 20140501

REACTIONS (5)
  - Gastric haemorrhage [None]
  - Syncope [None]
  - Gastrointestinal angiodysplasia haemorrhagic [None]
  - Anaemia [None]
  - International normalised ratio abnormal [None]

NARRATIVE: CASE EVENT DATE: 20140501
